FAERS Safety Report 22307097 (Version 1)
Quarter: 2023Q2

REPORT INFORMATION
  Report Type: Spontaneous
  Country: US (occurrence: None)
  Receive Date: 20230511
  Receipt Date: 20230511
  Transmission Date: 20230721
  Serious: No
  Sender: FDA-Public Use
  Company Number: US-ROCHE-3110831

PATIENT
  Sex: Male

DRUGS (2)
  1. OCREVUS [Suspect]
     Active Substance: OCRELIZUMAB
     Indication: Product used for unknown indication
     Dosage: /DEC/2021 LAST INFUSION
     Route: 042
  2. COVID-19 VACCINE [Concomitant]

REACTIONS (2)
  - SARS-CoV-2 antibody test negative [Unknown]
  - Immunosuppression [Unknown]
